FAERS Safety Report 8571754-8 (Version None)
Quarter: 2012Q3

REPORT INFORMATION
  Report Type: 
  Country: None (occurrence: None)
  Receive Date: 20120806
  Receipt Date: 20120803
  Transmission Date: 20120928
  Serious: Yes (Other)
  Sender: FDA-Public Use
  Company Number: PHHY2011NL099391

PATIENT
  Sex: Female

DRUGS (5)
  1. ZOMETA [Suspect]
     Dosage: 4 MG/5ML ONCE EVERY 42 DAYS
     Dates: start: 20111110
  2. ZOMETA [Suspect]
     Indication: BREAST CANCER METASTATIC
     Dosage: 1 DF, EVERY 6 WEEKS
     Dates: start: 20100401
  3. ZOMETA [Suspect]
     Dosage: 4 MG/5ML ONCE EVERY 42 DAYS
     Dates: start: 20100510
  4. ZOMETA [Suspect]
     Dosage: 4 MG/5ML ONCE EVERY 42 DAYS
     Dates: start: 20110929
  5. ZOMETA [Suspect]
     Dosage: 4 MG/5ML ONCE EVERY 42 DAYS
     Dates: start: 20120608

REACTIONS (7)
  - TOOTH IMPACTED [None]
  - TOOTH DISCOLOURATION [None]
  - NECROSIS [None]
  - BONE SWELLING [None]
  - SPLINTER [None]
  - DYSGEUSIA [None]
  - PAIN IN JAW [None]
